FAERS Safety Report 23215282 (Version 4)
Quarter: 2025Q3

REPORT INFORMATION
  Report Type: Spontaneous
  Country: CA (occurrence: CA)
  Receive Date: 20231122
  Receipt Date: 20250902
  Transmission Date: 20251020
  Serious: Yes (Other)
  Sender: INTERCEPT PHARMACEUTICALS
  Company Number: CA-ADVANZ PHARMA-202311010467

PATIENT
  Sex: Female

DRUGS (3)
  1. OCALIVA [Suspect]
     Active Substance: OBETICHOLIC ACID
     Indication: Primary biliary cholangitis
     Dosage: 5 MG, QD (OCALIVA IN THE MORNING AT BREAKFAST TIME)
     Route: 048
     Dates: start: 20220301
  2. URSO [Concomitant]
     Active Substance: URSODIOL
     Indication: Primary biliary cholangitis
     Dates: start: 201601
  3. FELODIPINE [Concomitant]
     Active Substance: FELODIPINE
     Indication: Raynaud^s phenomenon

REACTIONS (9)
  - Cerebrovascular accident [Unknown]
  - Condition aggravated [Unknown]
  - Pneumonia [Unknown]
  - Scleroderma [Unknown]
  - Respiratory disorder [Unknown]
  - Illness [Unknown]
  - Asthenia [Unknown]
  - Abdominal discomfort [Unknown]
  - Product dose omission issue [Unknown]

NARRATIVE: CASE EVENT DATE: 20250101
